FAERS Safety Report 5922773-9 (Version None)
Quarter: 2008Q4

REPORT INFORMATION
  Report Type: 
  Country: None (occurrence: None)
  Receive Date: 20081017
  Receipt Date: 20081013
  Transmission Date: 20090506
  Serious: Yes (Other)
  Sender: FDA-Public Use
  Company Number: US-GILEAD-2008-0018499

PATIENT
  Sex: Male
  Weight: 96.248 kg

DRUGS (6)
  1. ATRIPLA [Suspect]
     Indication: HIV INFECTION
     Route: 048
  2. TRICOR [Concomitant]
     Route: 048
  3. KALETRA [Concomitant]
  4. ZOLOFT [Concomitant]
     Route: 048
  5. LIPITOR [Concomitant]
     Route: 048
  6. CLONAZEPAM [Concomitant]
     Route: 048

REACTIONS (1)
  - CONVULSION [None]
